FAERS Safety Report 9437054 (Version 4)
Quarter: 2013Q4

REPORT INFORMATION
  Report Type: Spontaneous
  Country: JP (occurrence: JP)
  Receive Date: 20130802
  Receipt Date: 20131101
  Transmission Date: 20140711
  Serious: Yes (Death, Other)
  Sender: FDA-Public Use
  Company Number: JP-PFIZER INC-2013221389

PATIENT
  Age: 8 Decade
  Sex: Female

DRUGS (2)
  1. SUTENT [Suspect]
     Indication: METASTATIC RENAL CELL CARCINOMA
     Dosage: UNK
     Route: 048
  2. OXYCONTIN [Concomitant]
     Indication: PAIN

REACTIONS (4)
  - Multi-organ failure [Fatal]
  - Cancer pain [Recovering/Resolving]
  - Blood pressure increased [Recovering/Resolving]
  - Somnolence [Recovering/Resolving]
